FAERS Safety Report 23750795 (Version 1)
Quarter: 2024Q2

REPORT INFORMATION
  Report Type: Spontaneous
  Country: US (occurrence: US)
  Receive Date: 20240417
  Receipt Date: 20240417
  Transmission Date: 20240715
  Serious: No
  Sender: FDA-Public Use
  Company Number: US-BRISTOL-MYERS SQUIBB COMPANY-2024-059097

PATIENT
  Age: 74 Year
  Sex: Female

DRUGS (1)
  1. SOTYKTU [Suspect]
     Active Substance: DEUCRAVACITINIB
     Indication: Product used for unknown indication
     Route: 048

REACTIONS (5)
  - Dyspnoea [Unknown]
  - COVID-19 [Unknown]
  - Mouth ulceration [Unknown]
  - Vaginal ulceration [Unknown]
  - Skin ulcer [Unknown]

NARRATIVE: CASE EVENT DATE: 20230701
